FAERS Safety Report 13531993 (Version 1)
Quarter: 2017Q2

REPORT INFORMATION
  Report Type: Spontaneous
  Country: JP (occurrence: JP)
  Receive Date: 20170510
  Receipt Date: 20170510
  Transmission Date: 20170830
  Serious: Yes (Hospitalization)
  Sender: FDA-Public Use
  Company Number: JP-ELI_LILLY_AND_COMPANY-JP201705001124

PATIENT
  Age: 65 Year

DRUGS (3)
  1. CYRAMZA [Suspect]
     Active Substance: RAMUCIRUMAB
     Indication: GASTRIC CANCER
     Dosage: 300 MG, OTHER
     Route: 042
     Dates: start: 20170410
  2. PACLITAXEL. [Suspect]
     Active Substance: PACLITAXEL
     Indication: GASTRIC CANCER
     Dosage: 100 MG, OTHER
     Route: 042
     Dates: start: 20170410, end: 20170410
  3. PACLITAXEL. [Suspect]
     Active Substance: PACLITAXEL
     Dosage: 100 UNK, UNK
     Route: 042
     Dates: start: 20170424

REACTIONS (2)
  - Neutrophil count decreased [Recovered/Resolved]
  - Constipation [Not Recovered/Not Resolved]

NARRATIVE: CASE EVENT DATE: 20170417
